FAERS Safety Report 23735163 (Version 1)
Quarter: 2024Q2

REPORT INFORMATION
  Report Type: Other
  Country: US (occurrence: None)
  Receive Date: 20240412
  Receipt Date: 20240412
  Transmission Date: 20240715
  Serious: Yes (Hospitalization)
  Sender: FDA-Public Use
  Company Number: US-ROCHE-2313818

PATIENT
  Sex: Female

DRUGS (26)
  1. ACTEMRA [Suspect]
     Active Substance: TOCILIZUMAB
     Indication: Rheumatoid arthritis
     Route: 058
     Dates: start: 20190129
  2. ACTEMRA [Suspect]
     Active Substance: TOCILIZUMAB
  3. ACTEMRA [Suspect]
     Active Substance: TOCILIZUMAB
  4. ACTEMRA [Suspect]
     Active Substance: TOCILIZUMAB
     Indication: Autoimmune disorder
     Route: 058
  5. ACTEMRA [Suspect]
     Active Substance: TOCILIZUMAB
  6. ACTEMRA [Suspect]
     Active Substance: TOCILIZUMAB
  7. ELIQUIS [Concomitant]
     Active Substance: APIXABAN
  8. MEDROL [Concomitant]
     Active Substance: METHYLPREDNISOLONE
  9. CARTIA XT [Concomitant]
     Active Substance: DILTIAZEM HYDROCHLORIDE
  10. CYMBALTA [Concomitant]
     Active Substance: DULOXETINE HYDROCHLORIDE
  11. THALITONE [Concomitant]
     Active Substance: CHLORTHALIDONE
  12. PRINIVIL [Concomitant]
     Active Substance: LISINOPRIL
  13. VITAMIN D3 [Concomitant]
     Active Substance: CHOLECALCIFEROL
  14. ANTIVERT [Concomitant]
     Active Substance: MECLIZINE HYDROCHLORIDE
  15. PROVENTIL [Concomitant]
     Active Substance: ALBUTEROL
  16. ASPERCREME NOS [Concomitant]
     Active Substance: MENTHOL\TROLAMINE SALICYLATE
  17. KENALOG [Concomitant]
     Active Substance: TRIAMCINOLONE ACETONIDE
  18. LASIX [Concomitant]
     Active Substance: FUROSEMIDE
  19. EPIPEN [Concomitant]
     Active Substance: EPINEPHRINE
  20. ACETAMINOPHEN [Concomitant]
     Active Substance: ACETAMINOPHEN
  21. ASPIRIN [Concomitant]
     Active Substance: ASPIRIN
  22. LIPITOR [Concomitant]
     Active Substance: ATORVASTATIN CALCIUM
  23. BIOTIN [Concomitant]
     Active Substance: BIOTIN
  24. METAMUCIL [Concomitant]
     Active Substance: PLANTAGO SEED
  25. PRILOSEC [Concomitant]
     Active Substance: OMEPRAZOLE MAGNESIUM
  26. PLAQUENIL [Concomitant]
     Active Substance: HYDROXYCHLOROQUINE SULFATE

REACTIONS (2)
  - Cerebrovascular accident [Unknown]
  - Fatigue [Unknown]
